FAERS Safety Report 5920557-9 (Version None)
Quarter: 2008Q4

REPORT INFORMATION
  Report Type: 
  Country: None (occurrence: None)
  Receive Date: 20081016
  Receipt Date: 20081013
  Transmission Date: 20090506
  Serious: Yes (Hospitalization)
  Sender: FDA-Public Use
  Company Number: US-ABBOTT-08P-163-0479274-00

PATIENT
  Sex: Female
  Weight: 75.364 kg

DRUGS (6)
  1. VICODIN [Suspect]
     Indication: PAIN
     Route: 048
  2. SU-011, 248 [Suspect]
     Indication: METASTATIC RENAL CELL CARCINOMA
     Dosage: 50MG DAILY 4 WEEKS ON AND 2 WEEKS OFF
     Route: 048
     Dates: start: 20050418, end: 20050608
  3. SU-011, 248 [Suspect]
     Dosage: 37.5MG DAILY 4 WEEKS ON AND 2 WEEKS OFF
     Dates: start: 20050620, end: 20050807
  4. SU-011, 248 [Suspect]
     Dosage: 25MG DAILY 4 WEEKS ON AND 2 WEEKS OFF
     Dates: start: 20050822, end: 20070204
  5. AMLODIPINE [Concomitant]
     Indication: HYPERTENSION
     Route: 048
     Dates: start: 20050708
  6. OMEPRAZOLE MAGNESIUM [Concomitant]
     Indication: DYSPEPSIA
     Route: 048
     Dates: start: 20050822

REACTIONS (2)
  - ABDOMINAL PAIN [None]
  - CONSTIPATION [None]
